FAERS Safety Report 8802271 (Version 3)
Quarter: 2014Q3

REPORT INFORMATION
  Report Type: Report from Study
  Country: US (occurrence: US)
  Receive Date: 20120921
  Receipt Date: 20140902
  Transmission Date: 20150326
  Serious: Yes (Death)
  Sender: FDA-Public Use
  Company Number: US-ROCHE-1126854

PATIENT
  Sex: Female
  Weight: 75 kg

DRUGS (9)
  1. AVASTIN [Suspect]
     Active Substance: BEVACIZUMAB
     Indication: BRAIN NEOPLASM MALIGNANT
     Dosage: 10MG/KG
     Route: 042
     Dates: start: 200709, end: 200809
  2. HYDROCORTISONE. [Concomitant]
     Active Substance: HYDROCORTISONE
     Route: 065
  3. CARBOPLATIN. [Concomitant]
     Active Substance: CARBOPLATIN
     Indication: BRAIN NEOPLASM MALIGNANT
     Route: 065
  4. FOLIC ACID. [Concomitant]
     Active Substance: FOLIC ACID
  5. AVASTIN [Suspect]
     Active Substance: BEVACIZUMAB
     Indication: BRAIN NEOPLASM MALIGNANT
     Route: 042
  6. CAMPTOSAR [Concomitant]
     Active Substance: IRINOTECAN HYDROCHLORIDE
     Indication: BRAIN NEOPLASM MALIGNANT
     Route: 065
     Dates: start: 200709, end: 200809
  7. KEPPRA [Concomitant]
     Active Substance: LEVETIRACETAM
     Route: 065
  8. TEMODAR [Concomitant]
     Active Substance: TEMOZOLOMIDE
     Indication: PRODUCT USED FOR UNKNOWN INDICATION
     Route: 065
  9. FOSAMAX [Concomitant]
     Active Substance: ALENDRONATE SODIUM
     Route: 065

REACTIONS (8)
  - Confusional state [Unknown]
  - Diplopia [Unknown]
  - Sinus headache [Unknown]
  - Glioblastoma multiforme [Fatal]
  - Oropharyngeal pain [Unknown]
  - Infection [Unknown]
  - Dysphagia [Unknown]
  - Muscular weakness [Unknown]
